FAERS Safety Report 4521586-2 (Version None)
Quarter: 2004Q4

REPORT INFORMATION
  Report Type: 
  Country: None (occurrence: None)
  Receive Date: 20041206
  Receipt Date: 20041124
  Transmission Date: 20050328
  Serious: Yes (Hospitalization)
  Sender: FDA-Public Use
  Company Number: KII-2004-0014116

PATIENT
  Age: 41 Year
  Sex: Male

DRUGS (4)
  1. OXYCONTIN [Suspect]
     Indication: PAIN
  2. MORPHINE SULFATE [Suspect]
     Indication: PAIN
  3. ORGANOPHOSPHATE AND OTHER INSECTICIDE() [Suspect]
     Dosage: 3 CAN, DAILY, TOPICAL
     Route: 061
  4. ACETAMINOPHEN AND OXYCODONE HCL [Concomitant]

REACTIONS (17)
  - ATAXIA [None]
  - BLOOD PRESSURE DIASTOLIC DECREASED [None]
  - BLOOD PRESSURE SYSTOLIC INCREASED [None]
  - HAEMOGLOBIN ABNORMAL [None]
  - HAEMOGLOBIN DECREASED [None]
  - INTENTIONAL MISUSE [None]
  - LACRIMATION INCREASED [None]
  - MYDRIASIS [None]
  - NEUROPATHY PERIPHERAL [None]
  - PARAESTHESIA [None]
  - REFUSAL OF TREATMENT BY PATIENT [None]
  - SALIVARY HYPERSECRETION [None]
  - SKIN BURNING SENSATION [None]
  - TACHYCARDIA [None]
  - TOXICOLOGIC TEST ABNORMAL [None]
  - TREATMENT NONCOMPLIANCE [None]
  - VOMITING [None]
